FAERS Safety Report 21258806 (Version 1)
Quarter: 2022Q3

REPORT INFORMATION
  Report Type: Spontaneous
  Country: CN (occurrence: CN)
  Receive Date: 20220826
  Receipt Date: 20220826
  Transmission Date: 20221026
  Serious: Yes (Hospitalization, Other)
  Sender: FDA-Public Use
  Company Number: CN-PFIZER INC-PV202200050069

PATIENT
  Age: 33 Year
  Sex: Male
  Weight: 68 kg

DRUGS (5)
  1. CYTARABINE [Suspect]
     Active Substance: CYTARABINE
     Indication: Neoplasm
     Dosage: 0.1 G, 2X/DAY
     Route: 041
     Dates: start: 20220801, end: 20220807
  2. IDARUBICIN [Suspect]
     Active Substance: IDARUBICIN
     Indication: Neoplasm
     Dosage: 20 MG, 1X/DAY
     Route: 042
     Dates: start: 20220801, end: 20220802
  3. SODIUM CHLORIDE [Concomitant]
     Active Substance: SODIUM CHLORIDE
     Indication: Vehicle solution use
     Dosage: 250 ML, 2X/DAY
     Route: 041
     Dates: start: 20220801, end: 20220807
  4. SODIUM CHLORIDE [Concomitant]
     Active Substance: SODIUM CHLORIDE
     Indication: Vehicle solution use
     Dosage: 20 ML, 1X/DAY
     Route: 042
     Dates: start: 20220801, end: 20220802
  5. STERILE WATER [Concomitant]
     Active Substance: WATER
     Indication: Vehicle solution use
     Dosage: 10 ML, 1X/DAY
     Route: 042
     Dates: start: 20220801, end: 20220802

REACTIONS (3)
  - Rash [Recovered/Resolved]
  - Pruritus [Recovered/Resolved]
  - Skin exfoliation [Recovered/Resolved]

NARRATIVE: CASE EVENT DATE: 20220810
